FAERS Safety Report 6975905-8 (Version None)
Quarter: 2010Q3

REPORT INFORMATION
  Report Type: 
  Country: None (occurrence: None)
  Receive Date: 20100910
  Receipt Date: 20090410
  Transmission Date: 20110219
  Serious: No
  Sender: FDA-Public Use
  Company Number: US-WYE-H08922709

PATIENT
  Sex: Male
  Weight: 94.43 kg

DRUGS (1)
  1. PRISTIQ [Suspect]
     Indication: ANXIETY
     Route: 048
     Dates: start: 20090409, end: 20090410

REACTIONS (7)
  - BRUXISM [None]
  - FLATULENCE [None]
  - INSOMNIA [None]
  - MALAISE [None]
  - NAUSEA [None]
  - RESTLESSNESS [None]
  - UNEVALUABLE EVENT [None]
